FAERS Safety Report 8691285 (Version 2)
Quarter: 2012Q4

REPORT INFORMATION
  Report Type: 
  Country: CA (occurrence: CA)
  Receive Date: 20120730
  Receipt Date: 20121115
  Transmission Date: 20130627
  Serious: Yes (Other)
  Sender: FDA-Public Use
  Company Number: CA-BRISTOL-MYERS SQUIBB COMPANY-16706699

PATIENT
  Age: 50 Year
  Sex: Female
  Weight: 66 kg

DRUGS (4)
  1. ORENCIA [Suspect]
     Indication: RHEUMATOID ARTHRITIS
     Dosage: last infusion on 19-Jul-2012, 11Sep2012
Inf:13
     Route: 042
     Dates: start: 20111110, end: 201210
  2. ADVAIR [Concomitant]
  3. SYNTHROID [Concomitant]
  4. IMITREX [Concomitant]

REACTIONS (2)
  - Uveitis [Recovered/Resolved]
  - Drug ineffective [Unknown]
